FAERS Safety Report 7061407-X (Version None)
Quarter: 2010Q4

REPORT INFORMATION
  Report Type: 
  Country: None (occurrence: None)
  Receive Date: 20101026
  Receipt Date: 20101015
  Transmission Date: 20110411
  Serious: Yes (Hospitalization)
  Sender: FDA-Public Use
  Company Number: JP-GENZYME-THYM-1001965

PATIENT
  Sex: Female
  Weight: 48 kg

DRUGS (22)
  1. THYMOGLOBULIN [Suspect]
     Indication: APLASTIC ANAEMIA
     Dosage: 190 MG, QD
     Route: 042
     Dates: start: 20091102, end: 20091106
  2. METHYLPREDNISOLONE SODIUM SUCCINATE [Concomitant]
     Indication: PREMEDICATION
     Dosage: UNK
     Dates: start: 20091102, end: 20091106
  3. CHLORPHENIRAMINE MALEATE [Concomitant]
     Indication: PREMEDICATION
     Dosage: UNK
     Dates: start: 20091102, end: 20091106
  4. FILGRASTIM [Concomitant]
     Indication: APLASTIC ANAEMIA
     Dosage: UNK
     Dates: start: 20091106, end: 20091109
  5. FILGRASTIM [Concomitant]
     Dosage: UNK
     Dates: start: 20091214, end: 20091228
  6. LEVOFLOXACIN [Concomitant]
     Indication: INFECTION PROPHYLAXIS
     Dosage: UNK
     Dates: start: 20091102, end: 20091217
  7. FLUCONAZOLE [Concomitant]
     Indication: INFECTION PROPHYLAXIS
     Dosage: UNK
     Dates: start: 20091102, end: 20100308
  8. PREDNISOLONE [Concomitant]
     Indication: PREMEDICATION
     Dosage: UNK
     Dates: start: 20091107, end: 20091209
  9. CYCLOSPORINE [Concomitant]
     Indication: APLASTIC ANAEMIA
     Dosage: UNK
     Dates: start: 20091107, end: 20100208
  10. CYCLOSPORINE [Concomitant]
     Dosage: UNK
     Dates: start: 20100325
  11. ACETAMINOPHEN [Concomitant]
     Indication: PREMEDICATION
     Dosage: UNK
     Dates: start: 20091104, end: 20091106
  12. ACICLOVIR [Concomitant]
     Indication: INFECTION PROPHYLAXIS
     Dosage: UNK
     Dates: start: 20091102, end: 20091207
  13. ACICLOVIR [Concomitant]
     Dosage: UNK
     Dates: start: 20091228, end: 20100301
  14. MAGNESIUM OXIDE [Concomitant]
     Indication: CONSTIPATION
     Dosage: UNK
     Dates: start: 20091103
  15. INSULIN [Concomitant]
     Indication: DIABETES MELLITUS
     Dosage: UNK
     Dates: start: 20091112, end: 20091120
  16. RABEPRAZOLE SODIUM [Concomitant]
     Indication: PROPHYLAXIS AGAINST GASTROINTESTINAL ULCER
     Dosage: UNK
     Dates: start: 20091102, end: 20100308
  17. SULFAMETHOXAZOLE W [Concomitant]
     Indication: INFECTION PROPHYLAXIS
     Dosage: UNK
     Dates: start: 20091229, end: 20100301
  18. NATEGLINIDE [Concomitant]
     Indication: DIABETES MELLITUS
     Dosage: UNK
     Dates: start: 20100125, end: 20100302
  19. VOGLIBOSE [Concomitant]
     Indication: DIABETES MELLITUS
     Dosage: UNK
     Dates: start: 20100303
  20. REBAMIPIDE [Concomitant]
     Indication: PROPHYLAXIS AGAINST GASTROINTESTINAL ULCER
     Dosage: UNK
     Dates: start: 20100202
  21. HUMAN RED BLOOD CELLS [Concomitant]
     Indication: APLASTIC ANAEMIA
     Dosage: UNK
     Dates: start: 20091221, end: 20100205
  22. PLATELETS [Concomitant]
     Indication: APLASTIC ANAEMIA
     Dosage: UNK
     Dates: start: 20091104, end: 20100205

REACTIONS (9)
  - CYTOMEGALOVIRUS INFECTION [None]
  - DECREASED APPETITE [None]
  - ERYTHEMA [None]
  - INSOMNIA [None]
  - LUMBAR VERTEBRAL FRACTURE [None]
  - NAUSEA [None]
  - PERIODONTITIS [None]
  - PYREXIA [None]
  - RENAL IMPAIRMENT [None]
